FAERS Safety Report 23786145 (Version 1)
Quarter: 2024Q2

REPORT INFORMATION
  Report Type: Spontaneous
  Country: JP (occurrence: JP)
  Receive Date: 20240426
  Receipt Date: 20240426
  Transmission Date: 20240716
  Serious: Yes (Other)
  Sender: FDA-Public Use
  Company Number: JP-KVK-TECH, INC-20240400033

PATIENT

DRUGS (14)
  1. OXYCODONE HYDROCHLORIDE [Interacting]
     Active Substance: OXYCODONE HYDROCHLORIDE
     Indication: Proctalgia
     Dosage: 48 MILLIGRAM, QD, CONTINOUS INFUSION PLUS BOLUS OF 1 HOUR QUANTITY AS A RESCUE DOSE
     Route: 065
  2. OXYCODONE HYDROCHLORIDE [Interacting]
     Active Substance: OXYCODONE HYDROCHLORIDE
     Dosage: 108 MILLIGRAM, QD, INFUSION
     Route: 065
  3. OXYCODONE HYDROCHLORIDE [Interacting]
     Active Substance: OXYCODONE HYDROCHLORIDE
     Dosage: 48 MILLIGRAM, QD
     Route: 065
  4. OXYCODONE HYDROCHLORIDE [Interacting]
     Active Substance: OXYCODONE HYDROCHLORIDE
     Dosage: 60 MILLIGRAM (PER DAY), SUSTAINED-RELEASE PREPARATION
     Route: 048
  5. OXYCODONE HYDROCHLORIDE [Interacting]
     Active Substance: OXYCODONE HYDROCHLORIDE
     Dosage: 2.5 MILLIGRAM PER DOSE AS RAPID-RELEASE FORMULATION AS THE RESCUE MEDICATION
     Route: 065
  6. OXYCODONE HYDROCHLORIDE [Interacting]
     Active Substance: OXYCODONE HYDROCHLORIDE
     Dosage: 5 MILLIGRAM PER DOSE OF RAPID-RELEASE FORMULATION
     Route: 065
  7. DEXAMETHASONE [Interacting]
     Active Substance: DEXAMETHASONE
     Indication: Prophylaxis of nausea and vomiting
     Dosage: UNK, UNKNOWN
     Route: 042
  8. PALONOSETRON HYDROCHLORIDE [Interacting]
     Active Substance: PALONOSETRON HYDROCHLORIDE
     Indication: Prophylaxis of nausea and vomiting
     Dosage: UNK, UNKNOWN
     Route: 042
  9. FOSAPREPITANT [Interacting]
     Active Substance: FOSAPREPITANT
     Indication: Prophylaxis of nausea and vomiting
     Dosage: UNK, UNKNOWN
     Route: 042
  10. FENTANYL [Concomitant]
     Active Substance: FENTANYL\FENTANYL CITRATE
     Indication: Proctalgia
     Dosage: 0.36 MILLIGRAM, QD (INFUSION)
     Route: 065
  11. FENTANYL [Concomitant]
     Active Substance: FENTANYL\FENTANYL CITRATE
     Dosage: 12.5 MICROGRAM (PER HOUR)
     Route: 062
  12. FENTANYL [Concomitant]
     Active Substance: FENTANYL\FENTANYL CITRATE
     Dosage: 37.5 MICROGRAM (PER HOUR)
     Route: 062
  13. CISPLATIN [Concomitant]
     Active Substance: CISPLATIN
     Indication: Prostate cancer
     Dosage: 90 MILLIGRAM, UNKNOWN
     Route: 065
  14. ETOPOSIDE [Concomitant]
     Active Substance: ETOPOSIDE
     Indication: Prostate cancer
     Dosage: 140 MILLIGRAM, UNKNOWN
     Route: 065

REACTIONS (3)
  - Respiratory depression [Recovered/Resolved]
  - Drug interaction [Recovered/Resolved]
  - Sedation complication [Recovered/Resolved]
